FAERS Safety Report 9397129 (Version 2)
Quarter: 2013Q3

REPORT INFORMATION
  Report Type: Spontaneous
  Country: CH (occurrence: CH)
  Receive Date: 20130712
  Receipt Date: 20130718
  Transmission Date: 20140515
  Serious: No
  Sender: FDA-Public Use
  Company Number: CH-009507513-1307CHE006110

PATIENT
  Age: 44 Year
  Sex: Female

DRUGS (3)
  1. REMERON [Suspect]
     Indication: DEPRESSION
     Dosage: UNK, QD
     Route: 048
     Dates: start: 2013, end: 2013
  2. REMERON [Suspect]
     Dosage: UNK, QD
     Route: 048
     Dates: start: 2013
  3. REMERON [Suspect]
     Dosage: UNK, QD
     Route: 048
     Dates: start: 201304, end: 2013

REACTIONS (3)
  - Arrhythmia [Recovered/Resolved]
  - Breast enlargement [Recovered/Resolved]
  - Mastoptosis [Not Recovered/Not Resolved]
